FAERS Safety Report 7628368-3 (Version None)
Quarter: 2011Q3

REPORT INFORMATION
  Report Type: 
  Country: None (occurrence: None)
  Receive Date: 20110711
  Receipt Date: 20110624
  Transmission Date: 20111222
  Serious: Yes (Other)
  Sender: FDA-Public Use
  Company Number: CA-145214

PATIENT
  Sex: Male
  Weight: 86 kg

DRUGS (11)
  1. WINRHO SDF [Suspect]
  2. IMMUNE GLOBULIN NOS [Concomitant]
  3. NADOLOL [Concomitant]
  4. TRANEXAMIC ACID [Concomitant]
  5. WINRHO SDF [Suspect]
     Indication: IDIOPATHIC THROMBOCYTOPENIC PURPURA
     Dosage: (75 UG/KG TOTAL INTRAVENOUS), (INTRAVENOUS)
     Route: 042
     Dates: start: 20110528, end: 20110528
  6. WINRHO SDF [Suspect]
     Indication: IDIOPATHIC THROMBOCYTOPENIC PURPURA
     Dosage: (75 UG/KG TOTAL INTRAVENOUS), (INTRAVENOUS)
     Route: 042
     Dates: start: 20110528, end: 20110528
  7. FUROSEMIDE [Concomitant]
  8. DANAZOL [Concomitant]
  9. PIPERACILLIN AND TAZOBACTAM [Concomitant]
  10. DEXAMETHASONE [Concomitant]
  11. ACETAMINOPHEN [Concomitant]

REACTIONS (2)
  - ANAEMIA [None]
  - HAEMOLYSIS [None]
